FAERS Safety Report 9168495 (Version 3)
Quarter: 2013Q3

REPORT INFORMATION
  Report Type: Report from Study
  Country: US (occurrence: US)
  Receive Date: 20130318
  Receipt Date: 20130712
  Transmission Date: 20140515
  Serious: Yes (Other)
  Sender: FDA-Public Use
  Company Number: PHEH2013US002995

PATIENT
  Sex: Male

DRUGS (5)
  1. GLEEVEC [Suspect]
     Indication: MALIGNANT ANORECTAL NEOPLASM
     Dosage: 400 MG, QD
     Route: 048
     Dates: start: 20121024
  2. GLEEVEC [Suspect]
     Dosage: 200 MG, QD
     Route: 048
  3. GLEEVEC [Suspect]
     Dosage: 400 MG, DAILY
     Route: 048
  4. CHEMOTHERAPEUTICS [Concomitant]
     Dosage: UNK UKN, UNK
     Route: 042
  5. FERROUS FUMERATE [Concomitant]
     Dosage: UNK UKN, UNK

REACTIONS (4)
  - B-cell lymphoma [Unknown]
  - Nasopharyngeal cancer [Unknown]
  - Second primary malignancy [Unknown]
  - Nausea [Unknown]
